FAERS Safety Report 7955266-8 (Version None)
Quarter: 2011Q4

REPORT INFORMATION
  Report Type: 
  Country: None (occurrence: None)
  Receive Date: 20111202
  Receipt Date: 20111116
  Transmission Date: 20120403
  Serious: No
  Sender: FDA-Public Use
  Company Number: US-BAYER-2011-111889

PATIENT
  Sex: Female

DRUGS (2)
  1. ALEVE (CAPLET) [Suspect]
     Route: 048
  2. HAND SANITIZER [Suspect]
     Dosage: UNK

REACTIONS (2)
  - PRURITUS [None]
  - BURNING SENSATION [None]
